FAERS Safety Report 7276788-1 (Version None)
Quarter: 2011Q1

REPORT INFORMATION
  Report Type: 
  Country: None (occurrence: None)
  Receive Date: 20110207
  Receipt Date: 20110131
  Transmission Date: 20110831
  Serious: Yes (Hospitalization, Other)
  Sender: FDA-Public Use
  Company Number: US-AMGEN-USASP2011000838

PATIENT
  Age: 54 Year
  Sex: Male
  Weight: 46.122 kg

DRUGS (2)
  1. ENBREL [Suspect]
     Indication: PSORIATIC ARTHROPATHY
     Dosage: 50 MG, QWK
     Dates: start: 20050218, end: 20100501
  2. ENBREL [Suspect]
     Indication: PSORIASIS

REACTIONS (12)
  - RENAL CELL CARCINOMA [None]
  - OEDEMA PERIPHERAL [None]
  - SCROTAL OEDEMA [None]
  - GOUT [None]
  - ARTHRALGIA [None]
  - POSTOPERATIVE ILEUS [None]
  - RENAL CYST [None]
  - RENAL TUBULAR NECROSIS [None]
  - RENAL FAILURE ACUTE [None]
  - PROSTATOMEGALY [None]
  - PSORIASIS [None]
  - MUSCULAR WEAKNESS [None]
